FAERS Safety Report 6580814-2 (Version None)
Quarter: 2010Q1

REPORT INFORMATION
  Report Type: 
  Country: None (occurrence: None)
  Receive Date: 20100215
  Receipt Date: 20100209
  Transmission Date: 20100710
  Serious: Yes (Hospitalization)
  Sender: FDA-Public Use
  Company Number: US-BIOGENIDEC-2010BI000364

PATIENT
  Age: 51 Year
  Sex: Female

DRUGS (8)
  1. TYSABRI [Suspect]
     Indication: MULTIPLE SCLEROSIS
     Route: 042
     Dates: start: 20070702, end: 20091201
  2. ASPIRIN [Concomitant]
     Route: 048
  3. CARVEDILOL [Concomitant]
     Indication: HYPERTENSION
     Route: 048
  4. IMDUR [Concomitant]
     Indication: ANTIPHOSPHOLIPID SYNDROME
     Route: 048
  5. IMDUR [Concomitant]
     Route: 048
     Dates: start: 20091213
  6. AMLODIPINE [Concomitant]
     Indication: HYPERTENSION
     Route: 048
  7. VERAPAMIL [Concomitant]
     Indication: HYPERTENSION
     Route: 048
  8. DETROL [Concomitant]
     Route: 048

REACTIONS (2)
  - PRINZMETAL ANGINA [None]
  - PYREXIA [None]
